FAERS Safety Report 4595829-3 (Version None)
Quarter: 2005Q1

REPORT INFORMATION
  Report Type: 
  Country: None (occurrence: None)
  Receive Date: 20050224
  Receipt Date: 20050222
  Transmission Date: 20050727
  Serious: Yes (Hospitalization)
  Sender: FDA-Public Use
  Company Number: 200510014GDS

PATIENT
  Age: 85 Year
  Sex: Female

DRUGS (1)
  1. MOXIFLOXACIN HCL [Suspect]
     Indication: RESPIRATORY DISORDER
     Dosage: 400 MG, QD, ORAL
     Route: 048
     Dates: start: 20040203, end: 20040206

REACTIONS (1)
  - CLOSTRIDIUM COLITIS [None]
